FAERS Safety Report 11812280 (Version 44)
Quarter: 2018Q3

REPORT INFORMATION
  Report Type: Report from Study
  Country: US (occurrence: US)
  Receive Date: 20151208
  Receipt Date: 20180803
  Transmission Date: 20181010
  Serious: Yes (Hospitalization, Disabling, Other)
  Sender: FDA-Public Use
  Company Number: US-SA-2015SA201566

PATIENT
  Age: 51 Year
  Sex: Female

DRUGS (6)
  1. SOLU?MEDROL [Concomitant]
     Active Substance: METHYLPREDNISOLONE SODIUM SUCCINATE
     Indication: PREMEDICATION
     Dosage: 1000 MG,UNK
     Route: 042
     Dates: start: 20151130, end: 20151130
  2. BIOTIN [Concomitant]
     Active Substance: BIOTIN
     Dosage: UNK
  3. ALEMTUZUMAB [Suspect]
     Active Substance: ALEMTUZUMAB
     Indication: MULTIPLE SCLEROSIS
     Dosage: UNK
  4. DIPHENHYDRAMINE HYDROCHLORIDE. [Suspect]
     Active Substance: DIPHENHYDRAMINE HYDROCHLORIDE
     Dosage: UNK UNK,UNK
     Route: 065
  5. ARICEPT [Concomitant]
     Active Substance: DONEPEZIL HYDROCHLORIDE
     Dosage: UNK
  6. ACICLOVIR [Concomitant]
     Active Substance: ACYCLOVIR
     Dosage: 400 MG,UNK
     Route: 048

REACTIONS (55)
  - Pyrexia [Not Recovered/Not Resolved]
  - Loss of consciousness [Recovered/Resolved]
  - Haemorrhage [Recovering/Resolving]
  - Multiple sclerosis relapse [Not Recovered/Not Resolved]
  - Musculoskeletal disorder [Not Recovered/Not Resolved]
  - Time perception altered [Unknown]
  - Weight decreased [Not Recovered/Not Resolved]
  - Asthenia [Not Recovered/Not Resolved]
  - Micturition disorder [Not Recovered/Not Resolved]
  - Infusion related reaction [Unknown]
  - Haematochezia [Not Recovered/Not Resolved]
  - Basedow^s disease [Unknown]
  - Condition aggravated [Not Recovered/Not Resolved]
  - Visual impairment [Unknown]
  - Pallor [Recovered/Resolved]
  - Increased appetite [Recovered/Resolved]
  - Muscle spasms [Unknown]
  - Urinary tract infection [Not Recovered/Not Resolved]
  - Urinary incontinence [Recovered/Resolved]
  - Dysuria [Recovering/Resolving]
  - Hyperthyroidism [Unknown]
  - Scoliosis [Not Recovered/Not Resolved]
  - Urine output increased [Not Recovered/Not Resolved]
  - Decreased appetite [Unknown]
  - Loss of personal independence in daily activities [Not Recovered/Not Resolved]
  - Dysphagia [Not Recovered/Not Resolved]
  - Fatigue [Not Recovered/Not Resolved]
  - Contusion [Not Recovered/Not Resolved]
  - Spinal disorder [Not Recovered/Not Resolved]
  - Choking [Not Recovered/Not Resolved]
  - Cognitive disorder [Unknown]
  - Herpes zoster [Unknown]
  - Depression [Not Recovered/Not Resolved]
  - Nail disorder [Not Recovered/Not Resolved]
  - Impaired driving ability [Not Recovered/Not Resolved]
  - Gait disturbance [Not Recovered/Not Resolved]
  - Speech disorder [Not Recovered/Not Resolved]
  - Drug ineffective [Unknown]
  - Nonspecific reaction [Recovered/Resolved]
  - Insomnia [Not Recovered/Not Resolved]
  - Accident [Recovered/Resolved]
  - Anal incontinence [Unknown]
  - Euphoric mood [Unknown]
  - Ill-defined disorder [Not Recovered/Not Resolved]
  - Back pain [Not Recovered/Not Resolved]
  - Pollakiuria [Not Recovered/Not Resolved]
  - Amnesia [Not Recovered/Not Resolved]
  - Pain [Unknown]
  - Melanocytic naevus [Not Recovered/Not Resolved]
  - Gastrointestinal motility disorder [Recovered/Resolved]
  - Mobility decreased [Not Recovered/Not Resolved]
  - Fall [Recovering/Resolving]
  - Constipation [Recovering/Resolving]
  - Rash erythematous [Unknown]
  - Gingival bleeding [Recovering/Resolving]

NARRATIVE: CASE EVENT DATE: 2015
